FAERS Safety Report 6255118-8 (Version None)
Quarter: 2009Q3

REPORT INFORMATION
  Report Type: 
  Country: None (occurrence: None)
  Receive Date: 20090702
  Receipt Date: 20090623
  Transmission Date: 20100115
  Serious: Yes (Hospitalization)
  Sender: FDA-Public Use
  Company Number: IT-TEVA-199338ISR

PATIENT
  Age: 70 Year
  Sex: Female

DRUGS (1)
  1. MESALAZINE [Suspect]

REACTIONS (3)
  - HAEMOLYSIS [None]
  - HEPATIC FUNCTION ABNORMAL [None]
  - PLATELET COUNT DECREASED [None]
